FAERS Safety Report 4835128-5 (Version None)
Quarter: 2005Q4

REPORT INFORMATION
  Report Type: 
  Country: None (occurrence: None)
  Receive Date: 20051114
  Receipt Date: 20051101
  Transmission Date: 20060501
  Serious: Yes (Death)
  Sender: FDA-Public Use
  Company Number: US_0510122653

PATIENT
  Age: 52 Year
  Sex: Female

DRUGS (1)
  1. PROZAC [Suspect]

REACTIONS (13)
  - ARTERIOSCLEROSIS CORONARY ARTERY [None]
  - CEREBRAL ARTERIOSCLEROSIS [None]
  - DRUG SCREEN POSITIVE [None]
  - DRUG TOXICITY [None]
  - HEPATIC STEATOSIS [None]
  - HEPATOSPLENOMEGALY [None]
  - LABORATORY TEST INTERFERENCE [None]
  - MACROPHAGES INCREASED [None]
  - MYOCARDIAL INFARCTION [None]
  - NEPHROSCLEROSIS [None]
  - PULMONARY CONGESTION [None]
  - THYROID CYST [None]
  - THYROID GLAND CANCER [None]
